FAERS Safety Report 6731316-1 (Version None)
Quarter: 2010Q2

REPORT INFORMATION
  Report Type: 
  Country: None (occurrence: None)
  Receive Date: 20100517
  Receipt Date: 20100517
  Transmission Date: 20101027
  Serious: Yes (Life-Threatening, Other)
  Sender: FDA-Public Use
  Company Number: None

PATIENT
  Age: 45 Year
  Sex: Female
  Weight: 99.7913 kg

DRUGS (2)
  1. CYMBALTA [Suspect]
     Indication: ANXIETY
     Dosage: 2 X 60MG DAILY PO
     Route: 048
     Dates: start: 20060601, end: 20100510
  2. CYMBALTA [Suspect]
     Indication: DEPRESSION
     Dosage: 2 X 60MG DAILY PO
     Route: 048
     Dates: start: 20060601, end: 20100510

REACTIONS (4)
  - DRUG DOSE OMISSION [None]
  - DRUG WITHDRAWAL SYNDROME [None]
  - FEAR [None]
  - NIGHTMARE [None]
